FAERS Safety Report 15643367 (Version 3)
Quarter: 2019Q1

REPORT INFORMATION
  Report Type: Report from Study
  Country: US (occurrence: US)
  Receive Date: 20181121
  Receipt Date: 20190121
  Transmission Date: 20190417
  Serious: Yes (Hospitalization, Other)
  Sender: FDA-Public Use
  Company Number: PHEH2018US048667

PATIENT
  Sex: Female

DRUGS (2)
  1. PROMACTA [Suspect]
     Active Substance: ELTROMBOPAG OLAMINE
     Indication: PRODUCT USED FOR UNKNOWN INDICATION
     Route: 048
  2. INSULIN [Concomitant]
     Active Substance: INSULIN NOS
     Indication: PRODUCT USED FOR UNKNOWN INDICATION
     Route: 065

REACTIONS (8)
  - Osteomalacia [Unknown]
  - Blood glucose abnormal [Unknown]
  - Platelet count decreased [Unknown]
  - Osteonecrosis [Unknown]
  - Pain [Unknown]
  - Arthralgia [Unknown]
  - Back pain [Unknown]
  - Musculoskeletal pain [Unknown]
